FAERS Safety Report 8621908-7 (Version None)
Quarter: 2012Q3

REPORT INFORMATION
  Report Type: 
  Country: None (occurrence: None)
  Receive Date: 20120822
  Receipt Date: 20120822
  Transmission Date: 20120928
  Serious: Yes (Life-Threatening, Other)
  Sender: FDA-Public Use
  Company Number: None

PATIENT
  Age: 52 Year
  Sex: Male
  Weight: 54.4316 kg

DRUGS (3)
  1. SAPHRIS [Suspect]
     Indication: BIPOLAR DISORDER
     Dosage: 1 TAB 100MG 1X NIGHTLY PO
     Route: 048
     Dates: start: 20120817, end: 20120817
  2. SAPHRIS [Suspect]
     Indication: ANXIETY
     Dosage: 1 TAB 100MG 1X NIGHTLY PO
     Route: 048
     Dates: start: 20120817, end: 20120817
  3. SAPHRIS [Suspect]
     Indication: DEPRESSION
     Dosage: 1 TAB 100MG 1X NIGHTLY PO
     Route: 048
     Dates: start: 20120817, end: 20120817

REACTIONS (5)
  - HYPOAESTHESIA [None]
  - DIZZINESS [None]
  - LOSS OF CONSCIOUSNESS [None]
  - RASH [None]
  - SWELLING [None]
